FAERS Safety Report 4450730-0 (Version None)
Quarter: 2004Q3

REPORT INFORMATION
  Report Type: 
  Country: None (occurrence: None)
  Receive Date: 20040914
  Receipt Date: 20040914
  Transmission Date: 20050211
  Serious: Yes (Other)
  Sender: FDA-Public Use
  Company Number: None

PATIENT
  Age: 26 Year
  Sex: Female
  Weight: 40.8237 kg

DRUGS (2)
  1. INVANZ [Suspect]
     Indication: DECUBITUS ULCER
     Dosage: 1 GR IVPB Q 24
     Route: 042
     Dates: start: 20040910, end: 20040912
  2. INVANZ [Suspect]
     Indication: OSTEOMYELITIS
     Dosage: 1 GR IVPB Q 24
     Route: 042
     Dates: start: 20040910, end: 20040912

REACTIONS (1)
  - RASH PRURITIC [None]
